FAERS Safety Report 8139598-9 (Version None)
Quarter: 2012Q1

REPORT INFORMATION
  Report Type: 
  Country: None (occurrence: None)
  Receive Date: 20120215
  Receipt Date: 20120203
  Transmission Date: 20120608
  Serious: Yes (Death, Hospitalization, Other)
  Sender: FDA-Public Use
  Company Number: PHHY2012FR010468

PATIENT
  Sex: Female

DRUGS (8)
  1. AVASTIN [Suspect]
     Dosage: 15 MG/KG, TIW
     Route: 042
     Dates: start: 20100701, end: 20111017
  2. ACETAMINOPHEN [Concomitant]
     Dosage: 1 G, QID
  3. ZOMETA [Suspect]
     Indication: METASTASES TO BONE
     Dosage: 4 MG, TIW
     Dates: start: 20110106, end: 20111121
  4. DURAGESIC-100 [Concomitant]
     Dosage: 12 UG, Q72H
     Dates: end: 20111125
  5. ORAMORPH SR [Concomitant]
     Dosage: 5 MG, Q4H
  6. CLONAZEPAM [Suspect]
     Indication: BONE PAIN
     Dosage: 0.3 MG, QD
     Route: 048
     Dates: start: 20111117
  7. ARIMIDEX [Suspect]
     Indication: BREAST CANCER METASTATIC
     Route: 048
     Dates: start: 20110106, end: 20111117
  8. LOVENOX [Concomitant]
     Dosage: 0.4 MG, QD
     Route: 058

REACTIONS (15)
  - INTESTINAL ISCHAEMIA [None]
  - HAEMORRHAGE [None]
  - CARDIO-RESPIRATORY ARREST [None]
  - MONOPLEGIA [None]
  - BONE LESION [None]
  - HYPERAESTHESIA [None]
  - ABDOMINAL PAIN [None]
  - NEOPLASM PROGRESSION [None]
  - METASTASES TO MENINGES [None]
  - NEOPLASM MALIGNANT [None]
  - NEURALGIA [None]
  - PARAESTHESIA [None]
  - NAUSEA [None]
  - VOMITING [None]
  - HYPERTENSION [None]
